FAERS Safety Report 19380017 (Version 3)
Quarter: 2021Q3

REPORT INFORMATION
  Report Type: Spontaneous
  Country: JP (occurrence: JP)
  Receive Date: 20210607
  Receipt Date: 20210702
  Transmission Date: 20211014
  Serious: Yes (Other)
  Sender: FDA-Public Use
  Company Number: JP-TEVA-2021-JP-002742J

PATIENT
  Age: 55 Year
  Sex: Female

DRUGS (2)
  1. CERCINE [Suspect]
     Active Substance: DIAZEPAM
     Indication: DEPRESSED MOOD
  2. CERCINE [Suspect]
     Active Substance: DIAZEPAM
     Indication: ANXIETY
     Dosage: 5 MILLIGRAM DAILY;
     Route: 042
     Dates: start: 20210603, end: 20210603

REACTIONS (1)
  - Cardiac arrest [Recovered/Resolved]

NARRATIVE: CASE EVENT DATE: 20210603
